FAERS Safety Report 5119461-8 (Version None)
Quarter: 2006Q3

REPORT INFORMATION
  Report Type: 
  Country: None (occurrence: None)
  Receive Date: 20060928
  Receipt Date: 20060913
  Transmission Date: 20061208
  Serious: Yes (Death)
  Sender: FDA-Public Use
  Company Number: 2006SP001958

PATIENT
  Age: 60 Year
  Sex: Male

DRUGS (14)
  1. PEG-INTRON [Suspect]
     Indication: HEPATITIS C
     Dosage: SC
     Route: 058
     Dates: start: 20060311
  2. RIBAVIRIN [Suspect]
     Indication: HEPATITIS C
     Dosage: PO
     Route: 048
     Dates: start: 20060311
  3. ADVAIR DISKUS 100/50 [Concomitant]
  4. COLACE [Concomitant]
  5. COZAAR [Concomitant]
  6. EXCEDRIN (MIGRAINE) [Concomitant]
  7. FUIROSEMIDE [Concomitant]
  8. FERROUS SULFATE TAB [Concomitant]
  9. POTASSIUM [Concomitant]
  10. LABETALOL HYDROCHLORIDE [Concomitant]
  11. MINOXIDIL [Concomitant]
  12. PRILOSEC [Concomitant]
  13. PROCHLORPERAZINE [Concomitant]
  14. SPIRONOLACTONE [Concomitant]

REACTIONS (2)
  - FALL [None]
  - HEAD INJURY [None]
